FAERS Safety Report 19271585 (Version 3)
Quarter: 2021Q2

REPORT INFORMATION
  Report Type: Spontaneous
  Country: US (occurrence: US)
  Receive Date: 20210518
  Receipt Date: 20210604
  Transmission Date: 20210717
  Serious: Yes (Other)
  Sender: FDA-Public Use
  Company Number: US-ROCHE-2828579

PATIENT
  Age: 42 Year
  Sex: Female
  Weight: 107.6 kg

DRUGS (16)
  1. XOLAIR [Suspect]
     Active Substance: OMALIZUMAB
     Indication: PRURITUS
     Route: 058
     Dates: start: 202001, end: 202006
  2. LEVALBUTEROL. [Concomitant]
     Active Substance: LEVALBUTEROL
     Indication: ASTHMA
     Dosage: NEBULIZER
     Route: 055
  3. LEVOXYL [Concomitant]
     Active Substance: LEVOTHYROXINE SODIUM
     Route: 048
  4. EPIPEN [Concomitant]
     Active Substance: EPINEPHRINE
     Dates: start: 202001
  5. VITAMIN C [Concomitant]
     Active Substance: ASCORBIC ACID
     Route: 048
     Dates: start: 2017
  6. FLU VACCINE [Concomitant]
     Active Substance: INFLUENZA VIRUS VACCINE
     Dates: start: 202009
  7. XOLAIR [Suspect]
     Active Substance: OMALIZUMAB
     Route: 058
     Dates: start: 202010, end: 20210417
  8. LEVOXYL [Concomitant]
     Active Substance: LEVOTHYROXINE SODIUM
     Route: 048
  9. QVAR [Concomitant]
     Active Substance: BECLOMETHASONE DIPROPIONATE
     Indication: HYPERSENSITIVITY
     Route: 048
  10. XOLAIR [Suspect]
     Active Substance: OMALIZUMAB
     Indication: IDIOPATHIC URTICARIA
     Route: 058
     Dates: start: 202006, end: 202010
  11. XOLAIR [Suspect]
     Active Substance: OMALIZUMAB
     Route: 058
     Dates: start: 202105
  12. XOPENEX HFA [Concomitant]
     Active Substance: LEVALBUTEROL TARTRATE
     Indication: ASTHMA
     Dosage: INHALER
     Route: 055
  13. QVAR [Concomitant]
     Active Substance: BECLOMETHASONE DIPROPIONATE
     Route: 045
  14. IRON [Concomitant]
     Active Substance: IRON
  15. CROMOLYN [Concomitant]
     Active Substance: CROMOLYN
     Indication: ASTHMA
     Dosage: 100/ 5 ML, NEBULIZER
     Route: 055
  16. COVID?19 VACCINE NOS. [Concomitant]
     Active Substance: COVID-19 VACCINE NOS
     Dates: start: 202012, end: 202101

REACTIONS (13)
  - Bone pain [Recovered/Resolved]
  - Nausea [Unknown]
  - Asthenia [Unknown]
  - Sinusitis [Unknown]
  - Dehydration [Unknown]
  - Off label use [Unknown]
  - Orthostatic intolerance [Unknown]
  - Syncope [Unknown]
  - Autism spectrum disorder [Unknown]
  - Dizziness [Unknown]
  - Vitamin B12 decreased [Unknown]
  - Orthostatic hypotension [Unknown]
  - Feeling hot [Unknown]

NARRATIVE: CASE EVENT DATE: 2020
